FAERS Safety Report 11272720 (Version 1)
Quarter: 2015Q3

REPORT INFORMATION
  Report Type: Spontaneous
  Country: US (occurrence: None)
  Receive Date: 20150714
  Receipt Date: 20150714
  Transmission Date: 20151125
  Serious: Yes (Other)
  Sender: FDA-Public Use
  Company Number: None

PATIENT
  Age: 32 Year
  Sex: Female
  Weight: 52.16 kg

DRUGS (2)
  1. HONEST SUNSCREEN BROAD SPECTRUM SPF 30 [Suspect]
     Active Substance: ZINC OXIDE
     Indication: SUNBURN
     Dates: start: 20150701, end: 20150705
  2. HONEST SUNSCREEN BROAD SPECTRUM SPF 30 [Suspect]
     Active Substance: ZINC OXIDE
     Indication: PROPHYLAXIS
     Dates: start: 20150701, end: 20150705

REACTIONS (2)
  - Sunburn [None]
  - Drug ineffective [None]

NARRATIVE: CASE EVENT DATE: 20150701
